FAERS Safety Report 20813741 (Version 1)
Quarter: 2022Q2

REPORT INFORMATION
  Report Type: Spontaneous
  Country: FR (occurrence: FR)
  Receive Date: 20220511
  Receipt Date: 20220511
  Transmission Date: 20220721
  Serious: Yes (Other)
  Sender: FDA-Public Use
  Company Number: FR-LUPIN PHARMACEUTICALS INC.-2022-06780

PATIENT
  Age: 51 Year
  Sex: Male

DRUGS (4)
  1. HYDROXYCHLOROQUINE [Suspect]
     Active Substance: HYDROXYCHLOROQUINE
     Indication: Acute febrile neutrophilic dermatosis
     Dosage: UNK
     Route: 065
  2. COLCHICINE [Suspect]
     Active Substance: COLCHICINE
     Indication: Acute febrile neutrophilic dermatosis
     Dosage: UNK
     Route: 065
  3. DAPSONE [Suspect]
     Active Substance: DAPSONE
     Indication: Acute febrile neutrophilic dermatosis
     Dosage: UNK
     Route: 065
  4. ADALIMUMAB [Concomitant]
     Active Substance: ADALIMUMAB
     Indication: Acute febrile neutrophilic dermatosis
     Dosage: 40 MG (PER WEEK)
     Route: 058

REACTIONS (1)
  - Treatment failure [Unknown]
